FAERS Safety Report 4478205-3 (Version None)
Quarter: 2004Q4

REPORT INFORMATION
  Report Type: 
  Country: None (occurrence: None)
  Receive Date: 20041014
  Receipt Date: 20041005
  Transmission Date: 20050328
  Serious: Yes (Death, Life-Threatening, Disabling)
  Sender: FDA-Public Use
  Company Number: 2004-09-1235

PATIENT
  Sex: Male

DRUGS (2)
  1. INTRON A [Suspect]
     Indication: CHRONIC MYELOID LEUKAEMIA
  2. PREDNSOLONE [Concomitant]

REACTIONS (1)
  - ANAEMIA HAEMOLYTIC AUTOIMMUNE [None]
